FAERS Safety Report 6955361-6 (Version None)
Quarter: 2010Q3

REPORT INFORMATION
  Report Type: 
  Country: None (occurrence: None)
  Receive Date: 20100830
  Receipt Date: 20100816
  Transmission Date: 20110219
  Serious: Yes (Hospitalization, Other)
  Sender: FDA-Public Use
  Company Number: SK-ELI_LILLY_AND_COMPANY-SK201006000579

PATIENT
  Sex: Male

DRUGS (8)
  1. PEMETREXED [Suspect]
     Indication: ADENOCARCINOMA
     Dosage: 900 MG, EVERY 3 WEEKS
     Route: 042
     Dates: start: 20100507, end: 20100511
  2. ALLOPURINOL [Concomitant]
     Dosage: 100 MG, DAILY (1/D)
     Route: 048
  3. IBUPROFEN [Concomitant]
  4. CODEINE SUL TAB [Concomitant]
  5. FOLIC ACID [Concomitant]
     Dosage: 400 UG, DAILY (1/D)
     Route: 048
     Dates: start: 20100427
  6. VITAMIN B-12 [Concomitant]
     Indication: VITAMIN SUPPLEMENTATION
     Dosage: 1000 UG, UNK
     Route: 030
     Dates: start: 20100427
  7. MEDROL [Concomitant]
     Indication: PREMEDICATION
     Dosage: 32 MG, 2/D
     Dates: start: 20100506, end: 20100508
  8. RANITAL [Concomitant]
     Indication: PREMEDICATION
     Dosage: 150 MG, 2/D
     Dates: start: 20100506, end: 20100508

REACTIONS (13)
  - ANAEMIA [None]
  - ASTHENIA [None]
  - C-REACTIVE PROTEIN INCREASED [None]
  - CARDIAC FAILURE CONGESTIVE [None]
  - CHILLS [None]
  - DECREASED APPETITE [None]
  - DYSPNOEA [None]
  - ERYTHEMA [None]
  - MALIGNANT NEOPLASM PROGRESSION [None]
  - RASH PRURITIC [None]
  - RESPIRATORY TRACT INFECTION [None]
  - SKIN DISCOLOURATION [None]
  - STOMATITIS [None]
